FAERS Safety Report 4893312-9 (Version None)
Quarter: 2006Q1

REPORT INFORMATION
  Report Type: 
  Country: None (occurrence: None)
  Receive Date: 20060123
  Receipt Date: 20060123
  Transmission Date: 20060701
  Serious: Yes (Hospitalization)
  Sender: FDA-Public Use
  Company Number: None

PATIENT
  Age: 50 Year
  Sex: Male
  Weight: 72 kg

DRUGS (1)
  1. LYRICA [Suspect]
     Indication: CONVULSION
     Dosage: 75 MG Q 12 H, 150 MG Q 12 H, 300 M Q D
     Dates: start: 20051223, end: 20060116

REACTIONS (1)
  - THROMBOCYTOPENIA [None]
